FAERS Safety Report 10074711 (Version 1)
Quarter: 2014Q2

REPORT INFORMATION
  Report Type: Spontaneous
  Country: US (occurrence: US)
  Receive Date: 20140414
  Receipt Date: 20140414
  Transmission Date: 20141212
  Serious: No
  Sender: FDA-Public Use
  Company Number: US-009507513-1404USA004510

PATIENT
  Age: 56 Year
  Sex: Male

DRUGS (1)
  1. DULERA [Suspect]
     Indication: ASTHMA
     Dosage: TWO PUFFS TWICE DAILY
     Route: 055
     Dates: start: 201311

REACTIONS (3)
  - Drug ineffective [Unknown]
  - Product quality issue [Unknown]
  - Drug dose omission [Unknown]
